FAERS Safety Report 7015551-3 (Version None)
Quarter: 2010Q3

REPORT INFORMATION
  Report Type: 
  Country: None (occurrence: None)
  Receive Date: 20100922
  Receipt Date: 20100916
  Transmission Date: 20110219
  Serious: Yes (Other)
  Sender: FDA-Public Use
  Company Number: 2010SP046036

PATIENT
  Age: 61 Year
  Sex: Male

DRUGS (3)
  1. PEG-INTRON [Suspect]
     Indication: HEPATITIS C
     Dosage: 100 MCG;QW;SC
     Route: 058
     Dates: start: 20100301
  2. REBETOL [Suspect]
     Indication: HEPATITIS C
     Dosage: 800 MG;QD;PO ; 600 MG;QD;PO
     Route: 048
     Dates: start: 20100301
  3. REBETOL [Suspect]
     Indication: HEPATITIS C
     Dosage: 800 MG;QD;PO ; 600 MG;QD;PO
     Route: 048
     Dates: start: 20100401

REACTIONS (3)
  - DISEASE PROGRESSION [None]
  - HEPATITIS C [None]
  - LYMPHOMA [None]
